FAERS Safety Report 10246912 (Version 1)
Quarter: 2014Q2

REPORT INFORMATION
  Report Type: Spontaneous
  Country: US (occurrence: US)
  Receive Date: 20140619
  Receipt Date: 20140619
  Transmission Date: 20141212
  Serious: No
  Sender: FDA-Public Use
  Company Number: US-PFIZER INC-2014167368

PATIENT
  Sex: Female

DRUGS (2)
  1. PREMPRO [Suspect]
     Dosage: (0.45MG ESTROGENS CONJUGATED /1.5MG MEDROXYPROGESTERONE ACETATE), UNK
  2. PREMPRO [Suspect]
     Dosage: (0.3MG ESTROGENS CONJUGATED /1.5MG MEDROXYPROGESTERONE ACETATE), UNK

REACTIONS (1)
  - Dysgeusia [Unknown]
